FAERS Safety Report 7476600-1 (Version None)
Quarter: 2011Q2

REPORT INFORMATION
  Report Type: 
  Country: None (occurrence: None)
  Receive Date: 20110510
  Receipt Date: 20110510
  Transmission Date: 20111010
  Serious: Yes (Other)
  Sender: FDA-Public Use
  Company Number: None

PATIENT
  Sex: Male
  Weight: 97.5234 kg

DRUGS (1)
  1. DOCETAXEL [Suspect]
     Indication: PROSTATE CANCER
     Dosage: 60MG 2 WKS ON 1 WK OFF IV DRIP
     Route: 041
     Dates: start: 20110505, end: 20110505

REACTIONS (2)
  - ERYTHEMA [None]
  - NAUSEA [None]
